FAERS Safety Report 20820532 (Version 1)
Quarter: 2022Q2

REPORT INFORMATION
  Report Type: Spontaneous
  Country: US (occurrence: US)
  Receive Date: 20220512
  Receipt Date: 20220512
  Transmission Date: 20220721
  Serious: No
  Sender: FDA-Public Use
  Company Number: US-BAUSCH-BL-2022-011125

PATIENT
  Sex: Female

DRUGS (1)
  1. SODIUM SULFACETAMIDE [Suspect]
     Active Substance: SULFACETAMIDE SODIUM
     Indication: Product used for unknown indication
     Route: 047

REACTIONS (4)
  - Instillation site pain [Unknown]
  - Extra dose administered [Unknown]
  - Product delivery mechanism issue [Unknown]
  - Product deposit [Unknown]
